FAERS Safety Report 10909230 (Version 1)
Quarter: 2015Q1

REPORT INFORMATION
  Report Type: Spontaneous
  Country: US (occurrence: US)
  Receive Date: 20150312
  Receipt Date: 20150312
  Transmission Date: 20150721
  Serious: No
  Sender: FDA-Public Use
  Company Number: US-SA-2014SA037063

PATIENT
  Age: 48 Year
  Sex: Male

DRUGS (3)
  1. NASACORT ALLERGY 24HR [Suspect]
     Active Substance: TRIAMCINOLONE ACETONIDE
     Indication: SINUS DISORDER
     Dosage: ONE SPRAY IN EACH NOSTRIL ONCE A DAY IN FEB AND MAR DOSE:1 UNIT(S)
     Route: 065
     Dates: start: 201402
  2. NASACORT ALLERGY 24HR [Suspect]
     Active Substance: TRIAMCINOLONE ACETONIDE
     Indication: SINUS DISORDER
     Dosage: IN JANUARY HE USED TWO SPRAYS IN EACH NOSTRIL UNTIL HIS SYMPTOMS STARTED IMPROVING DOSE:2 UNIT(S)
     Route: 065
     Dates: start: 201401
  3. NASACORT ALLERGY 24HR [Suspect]
     Active Substance: TRIAMCINOLONE ACETONIDE
     Indication: SINUS DISORDER
     Dosage: ONE SPRAY IN EACH NOSTRIL ONCE A DAY IN FEB AND MAR DOSE:1 UNIT(S)
     Route: 065
     Dates: start: 201403

REACTIONS (2)
  - Lymphadenopathy [Not Recovered/Not Resolved]
  - Ear pain [Not Recovered/Not Resolved]
